FAERS Safety Report 4390465-6 (Version None)
Quarter: 2004Q3

REPORT INFORMATION
  Report Type: 
  Country: None (occurrence: None)
  Receive Date: 20040701
  Receipt Date: 20040701
  Transmission Date: 20050211
  Serious: Yes (Life-Threatening, Hospitalization)
  Sender: FDA-Public Use
  Company Number: None

PATIENT
  Sex: Female
  Weight: 80.2867 kg

DRUGS (1)
  1. ADVAIR DISKUS 250/50 [Suspect]
     Indication: ASTHMA
     Dosage: ONE PUFF ONE PUFF P
     Dates: start: 20010119, end: 20040702

REACTIONS (12)
  - ABDOMINAL PAIN UPPER [None]
  - APHONIA [None]
  - BUTTOCK PAIN [None]
  - DYSPNOEA [None]
  - HEADACHE [None]
  - MEDICATION ERROR [None]
  - MEMORY IMPAIRMENT [None]
  - MYALGIA [None]
  - PAIN IN EXTREMITY [None]
  - PALPITATIONS [None]
  - PHARYNGOLARYNGEAL PAIN [None]
  - WEIGHT INCREASED [None]
